FAERS Safety Report 22072661 (Version 2)
Quarter: 2023Q1

REPORT INFORMATION
  Report Type: Other
  Country: DE (occurrence: None)
  Receive Date: 20230308
  Receipt Date: 20230331
  Transmission Date: 20230418
  Serious: Yes (Other)
  Sender: FDA-Public Use
  Company Number: DE-ROCHE-3295648

PATIENT
  Age: 64 Year
  Sex: Male
  Weight: 82 kg

DRUGS (10)
  1. ATEZOLIZUMAB [Suspect]
     Active Substance: ATEZOLIZUMAB
     Indication: Hepatocellular carcinoma
     Route: 042
     Dates: start: 20220921, end: 20221123
  2. BEVACIZUMAB [Suspect]
     Active Substance: BEVACIZUMAB
     Indication: Hepatocellular carcinoma
     Route: 065
     Dates: start: 20220921, end: 20221123
  3. BISOPROLOL [Concomitant]
     Active Substance: BISOPROLOL
  4. AMLODIPINE [Concomitant]
     Active Substance: AMLODIPINE BESYLATE
  5. INDACATEROL ACETATE\MOMETASONE FUROATE [Concomitant]
     Active Substance: INDACATEROL ACETATE\MOMETASONE FUROATE
     Dosage: 1X 125/62.5
  6. PANTOZOL [Concomitant]
     Active Substance: PANTOPRAZOLE SODIUM
  7. AMPHOTERICIN B [Concomitant]
     Active Substance: AMPHOTERICIN B
     Dosage: 4X 500 MG
     Dates: start: 20230110
  8. BECLOMETHASONE [Concomitant]
     Active Substance: BECLOMETHASONE
     Dosage: 1 PUFF AS NEEDED
  9. LACTULOSE [Concomitant]
     Active Substance: LACTULOSE
  10. METAMIZOLE [Concomitant]
     Active Substance: METAMIZOLE
     Dosage: AS NEEDED

REACTIONS (4)
  - Alanine aminotransferase increased [Recovering/Resolving]
  - Aspartate aminotransferase increased [Recovering/Resolving]
  - Blood bilirubin increased [Recovering/Resolving]
  - Drug-induced liver injury [Recovering/Resolving]

NARRATIVE: CASE EVENT DATE: 20221102
